FAERS Safety Report 18172917 (Version 2)
Quarter: 2020Q3

REPORT INFORMATION
  Report Type: Report from Study
  Country: DE (occurrence: DE)
  Receive Date: 20200819
  Receipt Date: 20200828
  Transmission Date: 20201103
  Serious: Yes (Death, Hospitalization, Other)
  Sender: FDA-Public Use
  Company Number: DE-BRISTOL-MYERS SQUIBB COMPANY-BMS-2020-066719

PATIENT
  Age: 70 Year
  Sex: Male
  Weight: 90 kg

DRUGS (2)
  1. TRABECTEDIN [Suspect]
     Active Substance: TRABECTEDIN
     Indication: SARCOMA
     Dosage: C2D1
     Route: 065
     Dates: start: 20200714, end: 20200804
  2. NIVOLUMAB [Suspect]
     Active Substance: NIVOLUMAB
     Indication: SARCOMA
     Dosage: C2D1
     Route: 065
     Dates: start: 20200804, end: 20200804

REACTIONS (4)
  - Acute kidney injury [Fatal]
  - Neutropenic sepsis [Fatal]
  - Drug-induced liver injury [Not Recovered/Not Resolved]
  - Rhabdomyolysis [Fatal]

NARRATIVE: CASE EVENT DATE: 20200813
